FAERS Safety Report 12835515 (Version 1)
Quarter: 2016Q4

REPORT INFORMATION
  Report Type: Spontaneous
  Country: US (occurrence: US)
  Receive Date: 20161011
  Receipt Date: 20161011
  Transmission Date: 20170207
  Serious: Yes (Hospitalization)
  Sender: FDA-Public Use
  Company Number: US-009507513-1610USA001405

PATIENT
  Age: 61 Year
  Sex: Male

DRUGS (1)
  1. INTRON A [Suspect]
     Active Substance: INTERFERON ALFA-2B
     Indication: MYCOSIS FUNGOIDES
     Dosage: 3 MILLION IU, MON, WEDS, FRI
     Route: 058
     Dates: start: 20160818, end: 20160922

REACTIONS (3)
  - Product use issue [Unknown]
  - Infection [Unknown]
  - Depression [Unknown]

NARRATIVE: CASE EVENT DATE: 20160818
